FAERS Safety Report 7720167-7 (Version None)
Quarter: 2011Q3

REPORT INFORMATION
  Report Type: 
  Country: None (occurrence: None)
  Receive Date: 20110824
  Receipt Date: 20110811
  Transmission Date: 20111222
  Serious: Yes (Other)
  Sender: FDA-Public Use
  Company Number: LOC-00932

PATIENT
  Age: 65 Year
  Sex: Female

DRUGS (2)
  1. HYDROCORTISONE BUTYRATE [Suspect]
     Dates: start: 20110722, end: 20110726
  2. COUMADIN [Suspect]
     Indication: ATRIAL FIBRILLATION
     Dosage: 27.5 MG, WEEKLY ORAL
     Route: 048
     Dates: start: 20081027, end: 20110802

REACTIONS (2)
  - INTERNATIONAL NORMALISED RATIO INCREASED [None]
  - DRUG INTERACTION [None]
